FAERS Safety Report 24690190 (Version 1)
Quarter: 2024Q4

REPORT INFORMATION
  Report Type: Spontaneous
  Country: ZM (occurrence: ZM)
  Receive Date: 20241203
  Receipt Date: 20241203
  Transmission Date: 20250114
  Serious: Yes (Other)
  Sender: VIIV
  Company Number: ZM-VIIV HEALTHCARE-ZM2024EME149328

PATIENT

DRUGS (3)
  1. CABOTEGRAVIR [Suspect]
     Active Substance: CABOTEGRAVIR
     Indication: Prophylaxis against HIV infection
     Dosage: UNK (600MG/3MLS X 1/12)
     Route: 030
     Dates: start: 20240827, end: 20240926
  2. CABOTEGRAVIR [Suspect]
     Active Substance: CABOTEGRAVIR
  3. CABOTEGRAVIR [Suspect]
     Active Substance: CABOTEGRAVIR

REACTIONS (5)
  - Rash erythematous [Recovered/Resolved]
  - Cheilitis [Recovered/Resolved]
  - Oral mucosal eruption [Recovered/Resolved]
  - Stomatitis [Recovered/Resolved]
  - Decreased appetite [Unknown]

NARRATIVE: CASE EVENT DATE: 20240916
